FAERS Safety Report 19232225 (Version 1)
Quarter: 2021Q2

REPORT INFORMATION
  Report Type: Spontaneous
  Country: NL (occurrence: NL)
  Receive Date: 20210507
  Receipt Date: 20210507
  Transmission Date: 20210717
  Serious: Yes (Death)
  Sender: FDA-Public Use
  Company Number: NL-ACCORD-224309

PATIENT
  Age: 69 Year
  Sex: Female
  Weight: 65 kg

DRUGS (3)
  1. PERJETA [Concomitant]
     Active Substance: PERTUZUMAB
     Dosage: IV 840 MG
  2. CAPECITABINE. [Suspect]
     Active Substance: CAPECITABINE
     Indication: BREAST CANCER
     Dosage: 2X DAILY 1150 MG 14 DAY CURE 1 START 07?01?2020 (DOSE 50%),
     Dates: start: 20210107, end: 20210118
  3. KANJINTI [Concomitant]
     Active Substance: TRASTUZUMAB-ANNS
     Dosage: IV 650 MG

REACTIONS (4)
  - Diarrhoea [Fatal]
  - Stomatitis [Fatal]
  - Gastrointestinal inflammation [Fatal]
  - Hypertension [Fatal]

NARRATIVE: CASE EVENT DATE: 20210114
